FAERS Safety Report 5209843-8 (Version None)
Quarter: 2007Q1

REPORT INFORMATION
  Report Type: 
  Country: None (occurrence: None)
  Receive Date: 20070110
  Receipt Date: 20070108
  Transmission Date: 20070707
  Serious: Yes (Hospitalization)
  Sender: FDA-Public Use
  Company Number: GBWYE012925SEP06

PATIENT
  Age: 20 Month
  Sex: Male

DRUGS (4)
  1. REFACTO [Suspect]
     Indication: HAEMORRHAGE
     Dosage: 500 IU 1X PER 1 PRN ; 1000IU DAILY FREQUENCY UNKNOWN
     Dates: start: 20060718, end: 20060101
  2. REFACTO [Suspect]
     Indication: HAEMORRHAGE
     Dosage: 500 IU 1X PER 1 PRN ; 1000IU DAILY FREQUENCY UNKNOWN
     Dates: start: 20060606, end: 20060606
  3. REFACTO [Suspect]
     Indication: HAEMORRHAGE
     Dosage: 500 IU 1X PER 1 PRN ; 1000IU DAILY FREQUENCY UNKNOWN
     Dates: start: 20060101
  4. TRANEXAMIC ACID [Concomitant]

REACTIONS (3)
  - FACTOR VIII INHIBITION [None]
  - HAEMORRHAGE [None]
  - NO THERAPEUTIC RESPONSE [None]
